FAERS Safety Report 20371056 (Version 1)
Quarter: 2022Q1

REPORT INFORMATION
  Report Type: Spontaneous
  Country: GB (occurrence: GB)
  Receive Date: 20220124
  Receipt Date: 20220124
  Transmission Date: 20220423
  Serious: Yes (Hospitalization, Other)
  Sender: FDA-Public Use
  Company Number: None

PATIENT
  Sex: Male

DRUGS (2)
  1. TEGRETOL [Suspect]
     Active Substance: CARBAMAZEPINE
     Indication: Ill-defined disorder
     Dosage: 800 MG, BID
     Route: 048
  2. CARBAMAZEPINE [Concomitant]
     Active Substance: CARBAMAZEPINE
     Indication: Ill-defined disorder
     Dosage: UNK
     Route: 065

REACTIONS (3)
  - Fall [Unknown]
  - Malaise [Unknown]
  - Medication error [Unknown]
